FAERS Safety Report 8572645-9 (Version None)
Quarter: 2012Q2

REPORT INFORMATION
  Report Type: 
  Country: None (occurrence: None)
  Receive Date: 20120423
  Receipt Date: 20100514
  Transmission Date: 20120825
  Serious: Yes (Other)
  Sender: FDA-Public Use
  Company Number: PHEH2010US03274

PATIENT
  Age: 57 Year
  Sex: Male
  Weight: 68 kg

DRUGS (1)
  1. EXJADE [Suspect]
     Indication: IRON OVERLOAD
     Dosage: 1 G, QD, ORAL
     Route: 048
     Dates: start: 20100212, end: 20100315

REACTIONS (4)
  - SERUM FERRITIN INCREASED [None]
  - ASPARTATE AMINOTRANSFERASE INCREASED [None]
  - HEPATIC ENZYME INCREASED [None]
  - ALANINE AMINOTRANSFERASE DECREASED [None]
